FAERS Safety Report 15231020 (Version 1)
Quarter: 2018Q3

REPORT INFORMATION
  Report Type: Spontaneous
  Country: US (occurrence: US)
  Receive Date: 20180802
  Receipt Date: 20180802
  Transmission Date: 20181010
  Serious: Yes (Other)
  Sender: FDA-Public Use
  Company Number: US-ACCORD-064571

PATIENT
  Age: 67 Year
  Sex: Female
  Weight: 47.63 kg

DRUGS (11)
  1. FELODIPINE. [Concomitant]
     Active Substance: FELODIPINE
     Dosage: 1 TABLET EVERY MORNING
  2. DOCETAXEL ACCORD [Suspect]
     Active Substance: DOCETAXEL
     Indication: BREAST CANCER
     Dosage: NUMBER OF CYCLES: 04
     Route: 042
     Dates: start: 20151207, end: 20160208
  3. NEUPOGEN [Concomitant]
     Active Substance: FILGRASTIM
  4. EMEND [Concomitant]
     Active Substance: APREPITANT
  5. NEXIUM [Concomitant]
     Active Substance: ESOMEPRAZOLE MAGNESIUM
  6. CYTOXAN [Suspect]
     Active Substance: CYCLOPHOSPHAMIDE
     Indication: BREAST CANCER
     Route: 042
  7. HYDROCODONE [Concomitant]
     Active Substance: HYDROCODONE
     Dosage: 10?325 MG ??1 TABLET EVERY 6 HOURS
  8. SYMBICORT [Concomitant]
     Active Substance: BUDESONIDE\FORMOTEROL FUMARATE DIHYDRATE
     Dosage: 80/% 5
  9. DECADRON [Concomitant]
     Active Substance: DEXAMETHASONE
  10. NEULASTA [Concomitant]
     Active Substance: PEGFILGRASTIM
     Route: 058
  11. ALOXI [Concomitant]
     Active Substance: PALONOSETRON HYDROCHLORIDE

REACTIONS (1)
  - Alopecia [Not Recovered/Not Resolved]
